FAERS Safety Report 4398310-X (Version None)
Quarter: 2004Q3

REPORT INFORMATION
  Report Type: 
  Country: None (occurrence: None)
  Receive Date: 20040712
  Receipt Date: 20040624
  Transmission Date: 20050211
  Serious: Yes (Life-Threatening)
  Sender: FDA-Public Use
  Company Number: 2004022559

PATIENT
  Age: 21 Month
  Sex: Female

DRUGS (1)
  1. ATARAX [Suspect]
     Indication: INSOMNIA
     Dosage: ORAL
     Route: 048
     Dates: start: 20040315, end: 20040315

REACTIONS (5)
  - ANGIONEUROTIC OEDEMA [None]
  - COUGH [None]
  - LARYNGITIS VIRAL [None]
  - PYREXIA [None]
  - RESPIRATORY DISTRESS [None]
